FAERS Safety Report 14070626 (Version 3)
Quarter: 2017Q4

REPORT INFORMATION
  Report Type: Report from Study
  Country: JP (occurrence: JP)
  Receive Date: 20171010
  Receipt Date: 20171031
  Transmission Date: 20180321
  Serious: Yes (Death, Life-Threatening, Hospitalization)
  Sender: FDA-Public Use
  Company Number: JP-PFIZER INC-2017430305

PATIENT
  Age: 88 Year
  Sex: Female
  Weight: 34 kg

DRUGS (47)
  1. PREDONINE [Concomitant]
     Active Substance: PREDNISOLONE
     Dosage: 5 MG, 1X/DAY
     Route: 048
     Dates: end: 20141120
  2. HOKUNALIN /00654901/ [Concomitant]
     Active Substance: TULOBUTEROL
     Dosage: 2 MG, 1X/DAY
     Route: 062
     Dates: end: 20141209
  3. ZOFRAN [Concomitant]
     Active Substance: ONDANSETRON HYDROCHLORIDE
     Dosage: 4 MG, 1X/DAY
     Route: 048
     Dates: start: 20141121, end: 20141207
  4. FLUTIFORM [Concomitant]
     Active Substance: FLUTICASONE PROPIONATE\FORMOTEROL FUMARATE
     Dosage: 4 DF, 2X/DAY
     Dates: start: 20141205, end: 20141207
  5. SALIN [Concomitant]
     Dosage: 100 ML, 1X/DAY
     Dates: start: 20141107, end: 20141107
  6. SALIN [Concomitant]
     Dosage: 100 ML, 2X/DAY
     Dates: start: 20141202, end: 20141209
  7. POTACOL R [Concomitant]
     Dosage: 500 ML, 1X/DAY
     Dates: start: 20141107, end: 20141111
  8. HANP [Concomitant]
     Active Substance: CARPERITIDE
     Dosage: 4000 UG, DAILY(CONTINUOUSLY)
     Dates: start: 20141208, end: 20141209
  9. ADRENALINE /00003901/ [Concomitant]
     Active Substance: EPINEPHRINE
     Dosage: 0.2 MG, 1X/DAY
     Dates: start: 20141207, end: 20141207
  10. LASIX [Concomitant]
     Active Substance: FUROSEMIDE
     Dosage: 20 MG, 1X/DAY
     Dates: start: 20141107, end: 20141107
  11. LANDSEN [Concomitant]
     Active Substance: CLONAZEPAM
     Dosage: 0.5 MG, 1X/DAY
     Route: 048
     Dates: end: 20141202
  12. SALIN [Concomitant]
     Dosage: 100 ML, 2X/DAY
     Dates: start: 20141112, end: 20141125
  13. HANP [Concomitant]
     Active Substance: CARPERITIDE
     Dosage: 4000 UG, DAILY(CONTINUOUSLY)
     Dates: start: 20141107, end: 20141113
  14. BFLUID [Concomitant]
     Active Substance: AMINO ACIDS\DEXTROSE\ELECTROLYTES NOS\VITAMINS
     Dosage: 1000 ML, 1X/DAY
     Dates: start: 20141118, end: 20141121
  15. MICARDIS [Concomitant]
     Active Substance: TELMISARTAN
     Dosage: 20 MG, 1X/DAY
     Route: 048
     Dates: end: 20141207
  16. NAUZELIN [Concomitant]
     Active Substance: DOMPERIDONE
     Dosage: 10 MG, 3X/DAY
     Route: 048
     Dates: start: 20141120, end: 20141207
  17. SOLU-MEDROL [Concomitant]
     Active Substance: METHYLPREDNISOLONE SODIUM SUCCINATE
     Dosage: 125 MG, 1X/DAY
     Dates: start: 20141112, end: 20141114
  18. BFLUID [Concomitant]
     Active Substance: AMINO ACIDS\DEXTROSE\ELECTROLYTES NOS\VITAMINS
     Dosage: 500 ML, 3X/DAY
     Dates: start: 20141202, end: 20141207
  19. ADRENALINE /00003901/ [Concomitant]
     Active Substance: EPINEPHRINE
     Dosage: 0.2 MG, 1X/DAY
     Dates: start: 20141201, end: 20141202
  20. KN NO.3 [Concomitant]
     Active Substance: DEXTROSE\POTASSIUM CHLORIDE\SODIUM CHLORIDE\SODIUM LACTATE
     Dosage: 500 ML, 2X/DAY
     Dates: start: 20141209, end: 20141209
  21. LASIX [Concomitant]
     Active Substance: FUROSEMIDE
     Dosage: 20 MG, 3X/DAY
     Dates: start: 20141209, end: 20141209
  22. SOLU-MEDROL [Concomitant]
     Active Substance: METHYLPREDNISOLONE SODIUM SUCCINATE
     Dosage: 125 MG, 1X/DAY
     Dates: start: 20141107, end: 20141107
  23. BFLUID [Concomitant]
     Active Substance: AMINO ACIDS\DEXTROSE\ELECTROLYTES NOS\VITAMINS
     Dosage: 500 ML, 1X/DAY
     Dates: start: 20141111, end: 20141111
  24. CRIZOTINIB [Suspect]
     Active Substance: CRIZOTINIB
     Indication: NON-SMALL CELL LUNG CANCER
     Dosage: 200 MG, 2X/DAY
     Route: 048
     Dates: start: 20141105, end: 20141207
  25. ADONA /00056903/ [Concomitant]
     Active Substance: CARBAZOCHROME SODIUM SULFONATE
     Dosage: 30 MG, 3X/DAY
     Route: 048
     Dates: end: 20141207
  26. BFLUID [Concomitant]
     Active Substance: AMINO ACIDS\DEXTROSE\ELECTROLYTES NOS\VITAMINS
     Dosage: 500 ML, 1X/DAY
     Dates: start: 20141208, end: 20141208
  27. TIENAM [Concomitant]
     Active Substance: CILASTATIN SODIUM\IMIPENEM
     Dosage: 0.5 G, 1X/DAY
     Route: 030
     Dates: start: 20141201, end: 20141202
  28. ADRENALINE /00003901/ [Concomitant]
     Active Substance: EPINEPHRINE
     Dosage: 1 MG, 5X/DAY
     Dates: start: 20141209, end: 20141209
  29. KN NO.3 [Concomitant]
     Active Substance: DEXTROSE\POTASSIUM CHLORIDE\SODIUM CHLORIDE\SODIUM LACTATE
     Dosage: 500 ML, 3X/DAY
     Dates: start: 20141208, end: 20141208
  30. LANIRAPID [Concomitant]
     Active Substance: METILDIGOXIN
     Dosage: 0.1 MG, 1X/DAY
     Route: 048
     Dates: end: 20141113
  31. PREDONINE [Concomitant]
     Active Substance: PREDNISOLONE
     Dosage: 10 MG, 1X/DAY
     Route: 048
     Dates: start: 20141121, end: 20141207
  32. NITRODERM [Concomitant]
     Active Substance: NITROGLYCERIN
     Dosage: 25 MG, 1X/DAY
     Route: 062
     Dates: end: 20141209
  33. DUROTEP [Concomitant]
     Active Substance: FENTANYL
     Dosage: 8.4 MG, 1X/DAY
     Route: 062
     Dates: end: 20141209
  34. BFLUID [Concomitant]
     Active Substance: AMINO ACIDS\DEXTROSE\ELECTROLYTES NOS\VITAMINS
     Dosage: 1000 ML, 1X/DAY
     Dates: start: 20141112, end: 20141112
  35. BFLUID [Concomitant]
     Active Substance: AMINO ACIDS\DEXTROSE\ELECTROLYTES NOS\VITAMINS
     Dosage: 1000 ML, 1X/DAY
     Dates: start: 20141113, end: 20141117
  36. DEPO-MEDROL [Concomitant]
     Active Substance: METHYLPREDNISOLONE ACETATE
     Dosage: 120 MG, 1X/DAY
     Dates: start: 20141201, end: 20141201
  37. LANIRAPID [Concomitant]
     Active Substance: METILDIGOXIN
     Dosage: 0.05 MG, 1X/DAY
     Route: 048
     Dates: start: 20141114, end: 20141207
  38. AMOBAN [Concomitant]
     Active Substance: ZOPICLONE
     Dosage: 7.5 MG, 1X/DAY
     Route: 048
     Dates: end: 20141106
  39. ALVESCO [Concomitant]
     Active Substance: CICLESONIDE
     Dosage: 800 UG, 1X/DAY
     Route: 055
     Dates: end: 20141205
  40. CEFTAZIDIME. [Concomitant]
     Active Substance: CEFTAZIDIME
     Dosage: 1 G, 2X/DAY
     Dates: start: 20141112, end: 20141125
  41. LASIX [Concomitant]
     Active Substance: FUROSEMIDE
     Dosage: 40 MG, 1X/DAY
     Route: 048
     Dates: end: 20141207
  42. SENNOSIDE /00571901/ [Concomitant]
     Active Substance: SENNOSIDES A AND B
     Dosage: 12 MG, 1X/DAY
     Route: 048
     Dates: end: 20141207
  43. SOLU-MEDROL [Concomitant]
     Active Substance: METHYLPREDNISOLONE SODIUM SUCCINATE
     Dosage: 125 MG, 1X/DAY
     Dates: start: 20141208, end: 20141209
  44. SALIN [Concomitant]
     Dosage: 100 ML, 1X/DAY
     Dates: start: 20141112, end: 20141114
  45. SALIN [Concomitant]
     Dosage: 100 ML, 1X/DAY
     Dates: start: 20141208, end: 20141209
  46. BFLUID [Concomitant]
     Active Substance: AMINO ACIDS\DEXTROSE\ELECTROLYTES NOS\VITAMINS
     Dosage: 500 ML, 1X/DAY
     Dates: start: 20141122, end: 20141201
  47. PREDOPA /00360702/ [Concomitant]
     Dosage: 600 MG, DAILY(CONTINUOUSLY)
     Dates: start: 20141209, end: 20141209

REACTIONS (5)
  - Pulmonary embolism [Not Recovered/Not Resolved]
  - Cardiac failure acute [Not Recovered/Not Resolved]
  - Pneumonia bacterial [Not Recovered/Not Resolved]
  - Asthma [Not Recovered/Not Resolved]
  - Neoplasm progression [Fatal]

NARRATIVE: CASE EVENT DATE: 20141107
